FAERS Safety Report 14756140 (Version 2)
Quarter: 2018Q2

REPORT INFORMATION
  Report Type: Spontaneous
  Country: IN (occurrence: IN)
  Receive Date: 20180413
  Receipt Date: 20180420
  Transmission Date: 20180711
  Serious: Yes (Death, Other)
  Sender: FDA-Public Use
  Company Number: IN-ROCHE-2107232

PATIENT
  Age: 76 Year
  Sex: Male

DRUGS (3)
  1. PRADAXA [Concomitant]
     Active Substance: DABIGATRAN ETEXILATE MESYLATE
  2. ACTILYSE [Suspect]
     Active Substance: ALTEPLASE
     Indication: ISCHAEMIC STROKE
     Route: 042
     Dates: start: 20180407, end: 20180407
  3. PRAXBIND [Suspect]
     Active Substance: IDARUCIZUMAB
     Indication: SURGERY
     Route: 065

REACTIONS (3)
  - Hypotension [Fatal]
  - Cardiac arrest [Fatal]
  - Hemiparesis [Unknown]

NARRATIVE: CASE EVENT DATE: 20180407
